FAERS Safety Report 24193682 (Version 5)
Quarter: 2025Q4

REPORT INFORMATION
  Report Type: Spontaneous
  Country: US (occurrence: US)
  Receive Date: 20240809
  Receipt Date: 20251010
  Transmission Date: 20260117
  Serious: No
  Sender: DAIICHI
  Company Number: US-DAIICHI SANKYO, INC.-DSU-2024-139910AA

PATIENT
  Age: 63 Year
  Sex: Female

DRUGS (4)
  1. VANFLYTA [Suspect]
     Active Substance: QUIZARTINIB DIHYDROCHLORIDE
     Indication: Acute leukaemia
     Dosage: 17.7 MG, QD (DAILY)
     Route: 048
     Dates: start: 202405
  2. VANFLYTA [Suspect]
     Active Substance: QUIZARTINIB DIHYDROCHLORIDE
     Dosage: 2 TABLETS, EVERY DAY ON DAY6-19 OF EACH 28 DAY CYCLE
     Route: 048
  3. VANFLYTA [Suspect]
     Active Substance: QUIZARTINIB DIHYDROCHLORIDE
     Dosage: 26.5 MG, QD
     Route: 048
  4. VANFLYTA [Suspect]
     Active Substance: QUIZARTINIB DIHYDROCHLORIDE
     Dosage: TAKE 1 TABLET BY MOUTH EVERY DAY DAYS 1-14 THEN INCREASE AS DIRECTED TO 2 TABLETS BY MOUTH EVERY DAY
     Route: 048
     Dates: start: 20240919

REACTIONS (4)
  - COVID-19 [Unknown]
  - Product use issue [Unknown]
  - Off label use [Not Recovered/Not Resolved]
  - Off label use [Recovered/Resolved]

NARRATIVE: CASE EVENT DATE: 20240501
